FAERS Safety Report 6485234-7 (Version None)
Quarter: 2009Q4

REPORT INFORMATION
  Report Type: 
  Country: None (occurrence: None)
  Receive Date: 20091209
  Receipt Date: 20090822
  Transmission Date: 20100525
  Serious: No
  Sender: FDA-Public Use
  Company Number: US-AMGEN-KDL352033

PATIENT
  Sex: Female

DRUGS (3)
  1. ENBREL [Suspect]
     Indication: RHEUMATOID ARTHRITIS
     Route: 058
     Dates: start: 20090603
  2. PREDNISONE [Concomitant]
  3. ANTIBIOTICS [Concomitant]

REACTIONS (6)
  - ACNE [None]
  - CANDIDIASIS [None]
  - HEADACHE [None]
  - PRURITUS [None]
  - REFLUX OESOPHAGITIS [None]
  - URTICARIA [None]
